FAERS Safety Report 4736431-X (Version None)
Quarter: 2005Q3

REPORT INFORMATION
  Report Type: 
  Country: None (occurrence: None)
  Receive Date: 20050802
  Receipt Date: 20050726
  Transmission Date: 20060218
  Serious: Yes (Hospitalization)
  Sender: FDA-Public Use
  Company Number: 107079ISR

PATIENT
  Age: 34 Year
  Sex: Female

DRUGS (1)
  1. GLATIRAMER ACETATE [Suspect]
     Indication: MULTIPLE SCLEROSIS
     Dosage: 20 MILLIGRAM
     Route: 058
     Dates: start: 20050601, end: 20050708

REACTIONS (5)
  - CIRCULATORY COLLAPSE [None]
  - CYANOSIS [None]
  - DYSPNOEA [None]
  - LOSS OF CONSCIOUSNESS [None]
  - SWELLING FACE [None]
